FAERS Safety Report 23348976 (Version 3)
Quarter: 2024Q1

REPORT INFORMATION
  Report Type: Report from Study
  Country: CY (occurrence: CY)
  Receive Date: 20231229
  Receipt Date: 20240110
  Transmission Date: 20240410
  Serious: Yes (Other)
  Sender: FDA-Public Use
  Company Number: CY-ROCHE-3470505

PATIENT

DRUGS (19)
  1. GOSERELIN [Suspect]
     Active Substance: GOSERELIN
     Indication: HER2 positive breast cancer
     Dosage: 3.6MG UNKNOWN
     Route: 058
     Dates: start: 20180806
  2. GOSERELIN [Suspect]
     Active Substance: GOSERELIN
     Dosage: 3.6MG UNKNOWN
     Route: 058
     Dates: start: 20230112
  3. ZOLADEX [Suspect]
     Active Substance: GOSERELIN ACETATE
     Indication: HER2 positive breast cancer
     Dosage: UNK
     Route: 065
  4. NOLVADEX [Suspect]
     Active Substance: TAMOXIFEN CITRATE
     Indication: HER2 positive breast cancer
     Dosage: 20 MG, QD
     Route: 048
     Dates: start: 20180530
  5. NOLVADEX [Suspect]
     Active Substance: TAMOXIFEN CITRATE
     Dosage: MOST RECENT DOSE PRIOR TO AE
     Route: 048
     Dates: start: 20210723
  6. TAXOL [Suspect]
     Active Substance: PACLITAXEL
     Indication: HER2 positive breast cancer
     Dosage: 80 MILLIGRAM/SQ. METER, QW
     Route: 065
     Dates: start: 20171222
  7. HERCEPTIN [Suspect]
     Active Substance: TRASTUZUMAB
     Indication: HER2 positive breast cancer
     Dosage: 6 MILLIGRAM/KILOGRAM, EVERY 3 WEEKS
     Route: 065
     Dates: start: 20171229
  8. FEMARA [Suspect]
     Active Substance: LETROZOLE
     Indication: HER2 positive breast cancer
     Dosage: 2.5 MG, QD
     Route: 065
     Dates: start: 20210724
  9. FEMARA [Suspect]
     Active Substance: LETROZOLE
     Dosage: MOST RECENT DOSE PRIOR TO AE
     Route: 065
     Dates: start: 20230112
  10. XELODA [Suspect]
     Active Substance: CAPECITABINE
     Indication: HER2 positive breast cancer
     Dosage: 4000 MILLIGRAM, QD
     Route: 065
     Dates: start: 20221219
  11. PERJETA [Suspect]
     Active Substance: PERTUZUMAB
     Indication: HER2 positive breast cancer
     Dosage: 420 MILLIGRAM, QW
     Route: 065
     Dates: start: 20171228
  12. CAPECITABINE [Suspect]
     Active Substance: CAPECITABINE
     Indication: HER2 positive breast cancer
     Dosage: 4000 MILLIGRAM, QD
     Route: 048
     Dates: start: 20221219
  13. PACLITAXEL [Suspect]
     Active Substance: PACLITAXEL
     Indication: HER2 positive breast cancer
     Dosage: MOST RECENT DOSE PRIOR TO AE
     Route: 065
     Dates: start: 20180516
  14. PACLITAXEL [Suspect]
     Active Substance: PACLITAXEL
     Dosage: MOST RECENT DOSE PRIOR TO AE
     Route: 065
     Dates: start: 20171222
  15. OMEPRAZOLE [Concomitant]
     Active Substance: OMEPRAZOLE
     Indication: Product used for unknown indication
     Dosage: ONGOING = CHECKED
     Route: 065
     Dates: start: 20210723
  16. METOCLOPRAMIDE HYDROCHLORIDE [Concomitant]
     Active Substance: METOCLOPRAMIDE HYDROCHLORIDE
     Indication: Nausea
     Dosage: ONGOING = CHECKED
     Route: 065
     Dates: start: 20210830
  17. SENNA [Concomitant]
     Active Substance: SENNA LEAF\SENNOSIDES\SENNOSIDES A AND B
     Indication: Constipation
     Dosage: ONGOING = CHECKED
     Route: 065
     Dates: start: 20210830
  18. ATACAND [Concomitant]
     Active Substance: CANDESARTAN CILEXETIL
     Indication: Hypertension
     Dosage: ONGOING = CHECKED
     Route: 065
     Dates: start: 20210617
  19. SOLPADEINE [CAFFEINE;CODEINE PHOSPHATE;PARACETAMOL] [Concomitant]
     Indication: Headache
     Dosage: ONGOING = CHECKED
     Route: 065
     Dates: start: 20210719

REACTIONS (1)
  - Pneumonitis [Recovering/Resolving]

NARRATIVE: CASE EVENT DATE: 20231102
